FAERS Safety Report 18343186 (Version 1)
Quarter: 2020Q4

REPORT INFORMATION
  Report Type: Spontaneous
  Country: US (occurrence: US)
  Receive Date: 20201005
  Receipt Date: 20201005
  Transmission Date: 20210113
  Serious: No
  Sender: FDA-Public Use
  Company Number: US-ELI_LILLY_AND_COMPANY-US201912008387

PATIENT

DRUGS (1)
  1. TRULICITY [Suspect]
     Active Substance: DULAGLUTIDE
     Indication: PRODUCT USED FOR UNKNOWN INDICATION
     Dosage: UNK, WEEKLY (1/W) (EVERY WEDNESDAY)
     Route: 065

REACTIONS (7)
  - Impaired gastric emptying [Unknown]
  - Weight decreased [Unknown]
  - Hypophagia [Unknown]
  - Abdominal pain upper [Unknown]
  - Eructation [Unknown]
  - Abdominal distension [Unknown]
  - Flatulence [Unknown]
